FAERS Safety Report 8881581 (Version 1)
Quarter: 2012Q4

REPORT INFORMATION
  Report Type: 
  Country: ES (occurrence: ES)
  Receive Date: 20121102
  Receipt Date: 20121102
  Transmission Date: 20130627
  Serious: Yes (Other)
  Sender: FDA-Public Use
  Company Number: ES-ASTELLAS-2011EU001787

PATIENT
  Age: 39 Year
  Sex: Male

DRUGS (9)
  1. TACROLIMUS [Suspect]
     Indication: LIVER TRANSPLANT
     Dosage: UNK
     Route: 065
  2. ROSUVASTATIN [Interacting]
     Indication: DYSLIPIDAEMIA
     Dosage: 10 mg, Unknown/D
     Route: 065
     Dates: start: 20100503
  3. ROSUVASTATIN [Interacting]
     Dosage: 20 mg, Unknown/D
     Route: 065
     Dates: start: 20100524
  4. ROSUVASTATIN [Interacting]
     Dosage: 40 mg, Unknown/D
     Route: 065
     Dates: start: 20100621
  5. RALTEGRAVIR [Suspect]
     Dosage: UNK
     Route: 065
  6. ABACAVIR [Suspect]
     Dosage: UNK
     Route: 065
     Dates: end: 20100524
  7. LAMIVUDINE [Suspect]
     Dosage: UNK
     Route: 065
     Dates: end: 20100524
  8. MYCOPHENOLATE SODIUM [Suspect]
     Indication: LIVER TRANSPLANT
     Dosage: UNK
     Route: 065
  9. STEROID [Suspect]
     Indication: LIVER TRANSPLANT
     Dosage: UNK
     Route: 065

REACTIONS (2)
  - Drug interaction [Unknown]
  - Dyslipidaemia [Unknown]
